FAERS Safety Report 10796828 (Version 8)
Quarter: 2016Q1

REPORT INFORMATION
  Report Type: Spontaneous
  Country: US (occurrence: US)
  Receive Date: 20150216
  Receipt Date: 20160118
  Transmission Date: 20160525
  Serious: Yes (Hospitalization, Other)
  Sender: FDA-Public Use
  Company Number: US-UCBSA-2014022398

PATIENT
  Age: 35 Year
  Sex: Female
  Weight: 48 kg

DRUGS (11)
  1. ENTOCORT [Concomitant]
     Active Substance: BUDESONIDE
     Indication: STEROID THERAPY
     Dosage: 3 MG DAILY
     Route: 048
     Dates: start: 20141001, end: 20150601
  2. FLUOXETINE [Concomitant]
     Active Substance: FLUOXETINE HYDROCHLORIDE
     Indication: DEPRESSION
     Dosage: 20 MG, ONCE DAILY (QD)
     Route: 048
     Dates: start: 20150202
  3. LOTEMAX [Concomitant]
     Active Substance: LOTEPREDNOL ETABONATE
     Indication: STEROID THERAPY
     Dosage: UNK, MD
     Route: 047
     Dates: start: 20150805
  4. CIPRO [Concomitant]
     Active Substance: CIPROFLOXACIN HYDROCHLORIDE
     Indication: ANTI-INFECTIVE THERAPY
     Dosage: 500 MG, 2X/DAY (BID)
     Route: 048
     Dates: start: 20150306, end: 20150406
  5. CIPRO [Concomitant]
     Active Substance: CIPROFLOXACIN HYDROCHLORIDE
     Dosage: UNK
     Dates: start: 20151022
  6. CIMZIA [Suspect]
     Active Substance: CERTOLIZUMAB PEGOL
     Dosage: 400 MG, EV 4 WEEKS
     Route: 058
     Dates: start: 20150212, end: 2015
  7. PENTASA [Concomitant]
     Active Substance: MESALAMINE
     Indication: ANTIINFLAMMATORY THERAPY
     Dosage: 2000 MG, 2X/DAY (BID)
     Route: 048
     Dates: start: 20140204
  8. CIMZIA [Suspect]
     Active Substance: CERTOLIZUMAB PEGOL
     Dosage: 400 MG, EV 4 WEEKS
     Route: 058
     Dates: start: 20151020, end: 20151023
  9. VITAMIN D3 [Concomitant]
     Active Substance: CHOLECALCIFEROL
     Indication: VITAMIN SUPPLEMENTATION
     Dosage: 1000 IU, ONCE DAILY (QD)
     Route: 048
     Dates: start: 20090901
  10. CIMZIA [Suspect]
     Active Substance: CERTOLIZUMAB PEGOL
     Indication: CROHN^S DISEASE
     Dosage: 400 MG, EV 4 WEEKS, LOT NO.118878, EXPIRY DATE: ??-MAR-2017, EXPIRY DATE - ??-JAN-2018
     Route: 058
     Dates: start: 20110928, end: 20150116
  11. LAMICTAL [Concomitant]
     Active Substance: LAMOTRIGINE
     Indication: SEIZURE
     Dosage: 200 MG IN AM AND 300 MG IN PM
     Route: 048
     Dates: start: 20010101

REACTIONS (10)
  - Ovarian cyst [Recovered/Resolved]
  - Crohn^s disease [Recovered/Resolved with Sequelae]
  - Pain in extremity [Recovered/Resolved]
  - Skin irritation [Recovering/Resolving]
  - Abdominal pain [Recovered/Resolved]
  - Stoma complication [Recovered/Resolved]
  - Proctitis [Recovered/Resolved with Sequelae]
  - Eyelid ptosis [Not Recovered/Not Resolved]
  - Pyoderma gangrenosum [Recovered/Resolved]
  - Stoma site infection [Recovering/Resolving]

NARRATIVE: CASE EVENT DATE: 201412
